FAERS Safety Report 8207574-3 (Version None)
Quarter: 2012Q1

REPORT INFORMATION
  Report Type: 
  Country: None (occurrence: None)
  Receive Date: 20120314
  Receipt Date: 20120305
  Transmission Date: 20120608
  Serious: Yes (Other)
  Sender: FDA-Public Use
  Company Number: US-CELGENEUS-163-21880-12030417

PATIENT

DRUGS (1)
  1. REVLIMID [Suspect]
     Route: 065

REACTIONS (1)
  - OPTIC NEURITIS [None]
